FAERS Safety Report 12645584 (Version 5)
Quarter: 2017Q2

REPORT INFORMATION
  Report Type: Spontaneous
  Country: DE (occurrence: DE)
  Receive Date: 20160811
  Receipt Date: 20170404
  Transmission Date: 20170830
  Serious: Yes (Death, Life-Threatening, Hospitalization)
  Sender: FDA-Public Use
  Company Number: DE-JNJFOC-20160804118

PATIENT
  Age: 54 Year
  Sex: Female
  Weight: 53 kg

DRUGS (1)
  1. DARZALEX [Suspect]
     Active Substance: DARATUMUMAB
     Indication: PLASMA CELL MYELOMA
     Route: 042
     Dates: start: 20160802, end: 20160803

REACTIONS (11)
  - Tumour lysis syndrome [Fatal]
  - Hepatotoxicity [Unknown]
  - Plasma cell leukaemia [Unknown]
  - Hyperuricaemia [Unknown]
  - Multi-organ disorder [Unknown]
  - Atypical pneumonia [Unknown]
  - Pancytopenia [Unknown]
  - Central nervous system haemorrhage [Unknown]
  - Subdural haematoma [Unknown]
  - Disease progression [Unknown]
  - Fall [Unknown]

NARRATIVE: CASE EVENT DATE: 20160824
